FAERS Safety Report 6407565-9 (Version None)
Quarter: 2009Q4

REPORT INFORMATION
  Report Type: 
  Country: None (occurrence: None)
  Receive Date: 20091015
  Receipt Date: 20091009
  Transmission Date: 20100525
  Serious: Yes (Hospitalization)
  Sender: FDA-Public Use
  Company Number: 2009SP026980

PATIENT
  Age: 15 Year
  Sex: Female
  Weight: 40 kg

DRUGS (4)
  1. PEG-INTRON [Suspect]
     Indication: BONE SARCOMA
     Dosage: 50 MCG;
     Dates: start: 20090710, end: 20090717
  2. DOXORUBICIN HCL [Suspect]
     Indication: DRUG USE FOR UNKNOWN INDICATION
     Dosage: 110 MG;
     Dates: start: 20080813, end: 20090420
  3. CISPLATIN [Suspect]
     Indication: DRUG USE FOR UNKNOWN INDICATION
  4. METHOTREXATE [Suspect]
     Indication: DRUG USE FOR UNKNOWN INDICATION

REACTIONS (1)
  - CONGESTIVE CARDIOMYOPATHY [None]
